FAERS Safety Report 7128702-7 (Version None)
Quarter: 2010Q4

REPORT INFORMATION
  Report Type: 
  Country: None (occurrence: None)
  Receive Date: 20101130
  Receipt Date: 20101118
  Transmission Date: 20110411
  Serious: Yes (Other)
  Sender: FDA-Public Use
  Company Number: US-ROCHE-722740

PATIENT
  Sex: Female
  Weight: 55.8 kg

DRUGS (2)
  1. ACCUTANE [Suspect]
     Indication: ACNE
     Route: 065
     Dates: start: 19860627, end: 19861101
  2. ACCUTANE [Suspect]
     Route: 065
     Dates: start: 19880101, end: 19890101

REACTIONS (8)
  - DEPRESSION [None]
  - DRUG HYPERSENSITIVITY [None]
  - GASTROINTESTINAL INJURY [None]
  - HAEMORRHOIDS [None]
  - INFLAMMATORY BOWEL DISEASE [None]
  - INTESTINAL HAEMORRHAGE [None]
  - INTESTINAL OBSTRUCTION [None]
  - PROCTITIS ULCERATIVE [None]
